FAERS Safety Report 16017144 (Version 2)
Quarter: 2019Q1

REPORT INFORMATION
  Report Type: Report from Study
  Country: ES (occurrence: ES)
  Receive Date: 20190228
  Receipt Date: 20190304
  Transmission Date: 20190418
  Serious: Yes (Death)
  Sender: FDA-Public Use
  Company Number: ES-PFIZER INC-2019086138

PATIENT
  Age: 60 Year
  Sex: Male
  Weight: 66 kg

DRUGS (5)
  1. HIDROFEROL [Concomitant]
     Active Substance: CALCIFEDIOL
     Indication: HYPOVITAMINOSIS
     Dosage: UNK
     Route: 048
     Dates: end: 20190217
  2. EUTIROX [Concomitant]
     Active Substance: LEVOTHYROXINE SODIUM
     Indication: HYPOTHYROIDISM
     Dosage: UNK
     Route: 048
     Dates: end: 20190217
  3. LOSARTAN. [Concomitant]
     Active Substance: LOSARTAN
     Indication: HYPERTENSION
     Dosage: UNK
     Route: 048
     Dates: end: 20190217
  4. SUTENT [Suspect]
     Active Substance: SUNITINIB MALATE
     Indication: RENAL CELL CARCINOMA
     Dosage: 50 MG, EVERY DAY, 4 WEEK/2 OFF
     Route: 048
     Dates: start: 20190130
  5. ROSUVASTATINA [ROSUVASTATIN] [Concomitant]
     Indication: DYSLIPIDAEMIA
     Dosage: UNK
     Route: 048
     Dates: end: 20190217

REACTIONS (1)
  - Sudden death [Fatal]

NARRATIVE: CASE EVENT DATE: 20190217
